FAERS Safety Report 6213903-2 (Version None)
Quarter: 2009Q2

REPORT INFORMATION
  Report Type: 
  Country: None (occurrence: None)
  Receive Date: 20090602
  Receipt Date: 20090526
  Transmission Date: 20091009
  Serious: Yes (Hospitalization)
  Sender: FDA-Public Use
  Company Number: GXBR2009US01263

PATIENT
  Age: 79 Year
  Sex: Male
  Weight: 72.6 kg

DRUGS (5)
  1. AMIODARONE HCL [Suspect]
     Dosage: 200 MG, QD, ORAL
     Route: 048
     Dates: start: 20000101
  2. METOPROLOL (METOPROLOL) [Concomitant]
  3. BENAZEPRIL HYDROCHLORIDE [Concomitant]
  4. LASIX [Concomitant]
  5. ASPIRIN [Concomitant]

REACTIONS (11)
  - ANOREXIA [None]
  - ASTHENIA [None]
  - DEHYDRATION [None]
  - FEELING OF BODY TEMPERATURE CHANGE [None]
  - GAIT DISTURBANCE [None]
  - HEADACHE [None]
  - HYPERHIDROSIS [None]
  - HYPOAESTHESIA [None]
  - MEMORY IMPAIRMENT [None]
  - OEDEMA [None]
  - PARAESTHESIA [None]
